FAERS Safety Report 9649149 (Version 2)
Quarter: 2013Q4

REPORT INFORMATION
  Report Type: Spontaneous
  Country: US (occurrence: US)
  Receive Date: 20131028
  Receipt Date: 20131028
  Transmission Date: 20140711
  Serious: No
  Sender: FDA-Public Use
  Company Number: US-SA-POMP-1003182

PATIENT
  Age: 50 Year
  Sex: Female

DRUGS (1)
  1. LUMIZYME [Suspect]
     Indication: GLYCOGEN STORAGE DISEASE TYPE II
     Dosage: 1050 MG, Q2W
     Route: 042

REACTIONS (2)
  - Rash [Not Recovered/Not Resolved]
  - Product contamination physical [Unknown]
